FAERS Safety Report 11165840 (Version 1)
Quarter: 2015Q2

REPORT INFORMATION
  Report Type: Report from Study
  Country: BE (occurrence: BE)
  Receive Date: 20150604
  Receipt Date: 20150604
  Transmission Date: 20150821
  Serious: No
  Sender: FDA-Public Use
  Company Number: BE-ABBVIE-15P-013-1397800-00

PATIENT
  Sex: Female

DRUGS (3)
  1. HUMIRA [Suspect]
     Active Substance: ADALIMUMAB
     Indication: RHEUMATOID ARTHRITIS
     Route: 058
     Dates: start: 20141021, end: 20141103
  2. ARAVA [Concomitant]
     Active Substance: LEFLUNOMIDE
     Indication: RHEUMATOID ARTHRITIS
     Dates: start: 20100125
  3. LODEZ [Concomitant]
     Indication: HYPERTENSION
     Dates: start: 2009

REACTIONS (4)
  - Fatigue [Unknown]
  - Myalgia [Unknown]
  - Sleep disorder [Unknown]
  - Depression [Unknown]

NARRATIVE: CASE EVENT DATE: 20141103
